FAERS Safety Report 6612350-9 (Version None)
Quarter: 2010Q1

REPORT INFORMATION
  Report Type: 
  Country: None (occurrence: None)
  Receive Date: 20100303
  Receipt Date: 20100226
  Transmission Date: 20100710
  Serious: Yes (Life-Threatening)
  Sender: FDA-Public Use
  Company Number: JP-SANOFI-AVENTIS-2009SA003257

PATIENT
  Age: 79 Year
  Sex: Male
  Weight: 52.5 kg

DRUGS (16)
  1. PLAVIX [Suspect]
     Indication: ANGINA PECTORIS
     Route: 048
     Dates: start: 20080107, end: 20091114
  2. ALESION [Concomitant]
     Route: 065
  3. ALL OTHER THERAPEUTIC PRODUCTS [Concomitant]
     Route: 048
  4. EPL CAP. [Concomitant]
     Route: 048
  5. EFFORTIL [Concomitant]
     Route: 048
  6. TEPRENONE [Concomitant]
     Route: 048
  7. RIBOFLAVIN TETRABUTYRATE [Concomitant]
     Route: 048
  8. MENITAZINE [Concomitant]
     Route: 048
  9. VITAMIN E [Concomitant]
     Route: 048
  10. URSO 250 [Concomitant]
     Route: 048
  11. MAGNESIUM OXIDE [Concomitant]
     Route: 065
  12. MAOREAD [Concomitant]
     Route: 048
     Dates: start: 20090801
  13. METOPROLOL TARTRATE [Concomitant]
     Route: 048
     Dates: start: 20090801
  14. FAMOTIDINE [Concomitant]
     Route: 048
     Dates: start: 20020801
  15. ECABET MONOSODIUM [Concomitant]
     Route: 048
     Dates: start: 20020801
  16. PRAVASTATIN SODIUM [Suspect]
     Route: 048
     Dates: start: 20040312, end: 20091111

REACTIONS (3)
  - BLOOD CREATINE PHOSPHOKINASE INCREASED [None]
  - MALAISE [None]
  - MYALGIA [None]
